FAERS Safety Report 10050215 (Version 1)
Quarter: 2014Q1

REPORT INFORMATION
  Report Type: Spontaneous
  Country: US (occurrence: None)
  Receive Date: 20140331
  Receipt Date: 20140331
  Transmission Date: 20141002
  Serious: Yes (Life-Threatening, Disabling)
  Sender: FDA-Public Use
  Company Number: None

PATIENT
  Age: 24 Year
  Sex: Male
  Weight: 70.31 kg

DRUGS (1)
  1. AMPHETAMINE [Suspect]
     Indication: ATTENTION DEFICIT/HYPERACTIVITY DISORDER
     Dosage: ADDERALL XR ONCE DAILY TAKEN BY MOUTH
     Route: 048
     Dates: start: 20140315, end: 20140324

REACTIONS (5)
  - Dizziness [None]
  - Tachycardia [None]
  - Nervousness [None]
  - Loss of consciousness [None]
  - Product substitution issue [None]
